FAERS Safety Report 12395159 (Version 2)
Quarter: 2023Q1

REPORT INFORMATION
  Report Type: Report from Study
  Country: CA (occurrence: CA)
  Receive Date: 20160523
  Receipt Date: 20230328
  Transmission Date: 20230417
  Serious: Yes (Hospitalization, Other)
  Sender: FDA-Public Use
  Company Number: CA-TAKEDA-2016TUS008238

PATIENT
  Age: 72 Year
  Sex: Male

DRUGS (23)
  1. VEDOLIZUMAB [Suspect]
     Active Substance: VEDOLIZUMAB
     Indication: Crohn^s disease
     Dosage: 300 MILLIGRAM
     Route: 042
     Dates: start: 20160329
  2. VEDOLIZUMAB [Suspect]
     Active Substance: VEDOLIZUMAB
     Dosage: 300 MILLIGRAM
     Route: 042
     Dates: start: 20181112
  3. PREDNISONE [Concomitant]
     Active Substance: PREDNISONE
     Dosage: 5 MG, UNK
     Dates: start: 20160107
  4. STELARA [Concomitant]
     Active Substance: USTEKINUMAB
     Dosage: UNK
     Dates: start: 20160311
  5. STELARA [Concomitant]
     Active Substance: USTEKINUMAB
     Dosage: UNK
     Dates: end: 20160212
  6. DOMPERIDONE [Concomitant]
     Active Substance: DOMPERIDONE
     Dosage: UNK
  7. NITRO-DUR [Concomitant]
     Active Substance: NITROGLYCERIN
     Dosage: 2.2 MG, UNK
  8. ISOSORBIDE DINITRATE [Concomitant]
     Active Substance: ISOSORBIDE DINITRATE
     Dosage: UNK
  9. ASPIRIN [Concomitant]
     Active Substance: ASPIRIN
     Dosage: UNK
  10. ATORVASTATIN [Concomitant]
     Active Substance: ATORVASTATIN
     Dosage: UNK
  11. BISOPROLOL [Concomitant]
     Active Substance: BISOPROLOL
     Dosage: UNK
  12. CALCIUM [Concomitant]
     Active Substance: CALCIUM
     Dosage: UNK
  13. IRON [Concomitant]
     Active Substance: IRON
     Dosage: 300 MG, UNK
  14. SYNTHROID [Concomitant]
     Active Substance: LEVOTHYROXINE SODIUM
     Dosage: UNK
  15. PANTOPRAZOLE [Concomitant]
     Active Substance: PANTOPRAZOLE
     Dosage: UNK
  16. VITAMIN D NOS [Concomitant]
     Active Substance: VITAMIN D NOS
     Dosage: UNK
  17. TAMSULOSIN [Concomitant]
     Active Substance: TAMSULOSIN
     Dosage: UNK
  18. PERINDOPRIL [Concomitant]
     Active Substance: PERINDOPRIL
     Dosage: UNK
  19. ALBUTEROL [Concomitant]
     Active Substance: ALBUTEROL
     Dosage: UNK
  20. DOCUSATE [Concomitant]
     Active Substance: DOCUSATE
     Dosage: UNK
  21. GLYCOPYRROLATE [Concomitant]
     Active Substance: GLYCOPYRROLATE
     Dosage: UNK
  22. PROLIA [Concomitant]
     Active Substance: DENOSUMAB
     Dosage: UNK
  23. TRAZODONE [Concomitant]
     Active Substance: TRAZODONE HYDROCHLORIDE
     Dosage: UNK

REACTIONS (2)
  - Intestinal obstruction [Recovered/Resolved]
  - Crohn^s disease [Unknown]

NARRATIVE: CASE EVENT DATE: 20160418
